FAERS Safety Report 7938131-1 (Version None)
Quarter: 2011Q4

REPORT INFORMATION
  Report Type: 
  Country: None (occurrence: None)
  Receive Date: 20111123
  Receipt Date: 20110804
  Transmission Date: 20120403
  Serious: Yes (Other)
  Sender: FDA-Public Use
  Company Number: US-BRISTOL-MYERS SQUIBB COMPANY-15947823

PATIENT
  Age: 50 Year
  Sex: Male

DRUGS (9)
  1. HYDROCHLOROTHIAZIDE [Concomitant]
  2. VICODIN [Concomitant]
     Indication: FOOT FRACTURE
     Dosage: AT BED TIME
  3. METOPROLOL TARTRATE [Concomitant]
     Dosage: 1DF:100 UNIT NOS
  4. ALLOPURINOL [Concomitant]
     Dosage: 1DF:100 UNIT NOS
  5. ONGLYZA [Suspect]
     Indication: TYPE 2 DIABETES MELLITUS
  6. LYRICA [Concomitant]
  7. ENALAPRIL MALEATE [Concomitant]
  8. NORVASC [Concomitant]
  9. METFORMIN [Concomitant]

REACTIONS (2)
  - LEUKOPLAKIA ORAL [None]
  - RASH [None]
